FAERS Safety Report 19181987 (Version 1)
Quarter: 2021Q2

REPORT INFORMATION
  Report Type: Spontaneous
  Country: US (occurrence: US)
  Receive Date: 20210426
  Receipt Date: 20210426
  Transmission Date: 20210717
  Serious: Yes (Other)
  Sender: FDA-Public Use
  Company Number: US-NOVOPROD-804944

PATIENT
  Age: 66 Year
  Sex: Female

DRUGS (1)
  1. RYBELSUS [Suspect]
     Active Substance: SEMAGLUTIDE
     Indication: TYPE 2 DIABETES MELLITUS
     Dosage: 7 MG, QD
     Route: 048
     Dates: start: 20210316

REACTIONS (2)
  - Oropharyngeal blistering [Not Recovered/Not Resolved]
  - Oropharyngeal blistering [Recovered/Resolved]

NARRATIVE: CASE EVENT DATE: 202103
